FAERS Safety Report 14168504 (Version 2)
Quarter: 2017Q4

REPORT INFORMATION
  Report Type: Spontaneous
  Country: JP (occurrence: JP)
  Receive Date: 20171108
  Receipt Date: 20171119
  Transmission Date: 20180321
  Serious: Yes (Other)
  Sender: FDA-Public Use
  Company Number: JP-SHIRE-JP201728360

PATIENT

DRUGS (9)
  1. FLUVOXAMINE MALEATE. [Concomitant]
     Active Substance: FLUVOXAMINE MALEATE
     Indication: PRODUCT USED FOR UNKNOWN INDICATION
  2. AKINETON [Concomitant]
     Active Substance: BIPERIDEN HYDROCHLORIDE
     Indication: PRODUCT USED FOR UNKNOWN INDICATION
  3. SELENICA-R [Concomitant]
     Active Substance: VALPROATE SODIUM
     Indication: EPILEPSY
  4. MYSTAN [Concomitant]
     Active Substance: CLOBAZAM
     Indication: SLEEP DISORDER
  5. CARBOCISTEINE [Concomitant]
     Active Substance: CARBOCYSTEINE
     Indication: SPUTUM RETENTION
  6. CLARITH [Concomitant]
     Active Substance: CLARITHROMYCIN
     Indication: PRODUCT USED FOR UNKNOWN INDICATION
  7. INTUNIV [Suspect]
     Active Substance: GUANFACINE HYDROCHLORIDE
     Indication: ATTENTION DEFICIT/HYPERACTIVITY DISORDER
     Dosage: 1 MG, UNKNOWN
     Route: 048
     Dates: start: 20170831, end: 20170914
  8. INTUNIV [Suspect]
     Active Substance: GUANFACINE HYDROCHLORIDE
     Dosage: 2 MG, 1X/DAY:QD
     Route: 048
     Dates: start: 20170831, end: 20170914
  9. CONTOMIN                           /00011902/ [Concomitant]
     Active Substance: CHLORPROMAZINE HYDROCHLORIDE
     Indication: PRODUCT USED FOR UNKNOWN INDICATION

REACTIONS (2)
  - Epilepsy [Recovered/Resolved]
  - Somnolence [Recovered/Resolved]

NARRATIVE: CASE EVENT DATE: 201709
